FAERS Safety Report 13792610 (Version 1)
Quarter: 2017Q3

REPORT INFORMATION
  Report Type: Report from Study
  Country: AR (occurrence: AR)
  Receive Date: 20170725
  Receipt Date: 20170725
  Transmission Date: 20171127
  Serious: Yes (Disabling, Other)
  Sender: FDA-Public Use
  Company Number: AR-EMD SERONO-8079890

PATIENT
  Sex: Female

DRUGS (1)
  1. REBIF [Suspect]
     Active Substance: INTERFERON BETA-1A
     Indication: MULTIPLE SCLEROSIS
     Route: 058
     Dates: start: 20000715

REACTIONS (6)
  - Cataract [Recovering/Resolving]
  - Fatigue [Recovering/Resolving]
  - Maculopathy [Recovering/Resolving]
  - Hypoaesthesia [Unknown]
  - Coordination abnormal [Unknown]
  - Urinary tract infection [Unknown]
